FAERS Safety Report 17471563 (Version 1)
Quarter: 2020Q1

REPORT INFORMATION
  Report Type: Spontaneous
  Country: FR (occurrence: FR)
  Receive Date: 20200228
  Receipt Date: 20200228
  Transmission Date: 20200409
  Serious: Yes (Other)
  Sender: FDA-Public Use
  Company Number: FR-TEVA-2020-FR-1191847

PATIENT
  Age: 38 Year
  Sex: Female
  Weight: 89 kg

DRUGS (2)
  1. RISPERIDONE. [Suspect]
     Active Substance: RISPERIDONE
     Indication: BRIEF PSYCHOTIC DISORDER, WITH POSTPARTUM ONSET
     Route: 048
     Dates: start: 20191224, end: 20191230
  2. ABILIFY MAINTENA [Suspect]
     Active Substance: ARIPIPRAZOLE
     Indication: BRIEF PSYCHOTIC DISORDER, WITH POSTPARTUM ONSET
     Dosage: 400MG
     Route: 030
     Dates: start: 20191219, end: 20191219

REACTIONS (1)
  - Rosacea [Recovered/Resolved]

NARRATIVE: CASE EVENT DATE: 20191230
